FAERS Safety Report 25663436 (Version 1)
Quarter: 2025Q3

REPORT INFORMATION
  Report Type: Spontaneous
  Country: EU (occurrence: EU)
  Receive Date: 20250811
  Receipt Date: 20250811
  Transmission Date: 20251021
  Serious: Yes (Hospitalization, Other)
  Sender: MANKIND PHARMA
  Company Number: EU-MankindUS-000450

PATIENT
  Age: 70 Year
  Sex: Male

DRUGS (3)
  1. LIDOCAINE HYDROCHLORIDE [Suspect]
     Active Substance: LIDOCAINE HYDROCHLORIDE
     Indication: Local anaesthesia
     Route: 058
  2. PANTOPRAZOLE [Concomitant]
     Active Substance: PANTOPRAZOLE
     Route: 023
  3. DOMPERIDONE [Concomitant]
     Active Substance: DOMPERIDONE

REACTIONS (3)
  - Local anaesthetic systemic toxicity [Recovered/Resolved]
  - Hypochromic anaemia [Recovered/Resolved]
  - Thrombocytopenia [Recovered/Resolved]
